FAERS Safety Report 14892451 (Version 1)
Quarter: 2018Q2

REPORT INFORMATION
  Report Type: Spontaneous
  Country: JP (occurrence: JP)
  Receive Date: 20180514
  Receipt Date: 20180514
  Transmission Date: 20180711
  Serious: Yes (Hospitalization, Other)
  Sender: FDA-Public Use
  Company Number: JP-PFIZER INC-2018192605

PATIENT
  Age: 49 Year
  Sex: Female

DRUGS (5)
  1. MICARDIS [Concomitant]
     Active Substance: TELMISARTAN
     Dosage: 20 MG, UNK
     Route: 065
     Dates: start: 2018
  2. MERISLON [Concomitant]
     Active Substance: BETAHISTINE MESILATE
     Dosage: 6 MG, UNK
     Route: 065
  3. LONASEN [Suspect]
     Active Substance: BLONANSERIN
     Dosage: 8 MG, 1X/DAY
     Route: 048
     Dates: start: 20171218, end: 20180208
  4. LIPITOR [Suspect]
     Active Substance: ATORVASTATIN CALCIUM
     Dosage: 5 MG, 1X/DAY
     Route: 048
     Dates: end: 20180305
  5. ABILIFY [Suspect]
     Active Substance: ARIPIPRAZOLE
     Indication: SCHIZOPHRENIA
     Dosage: UNK UNK, UNKNOWN FREQ.
     Route: 030
     Dates: start: 20180111, end: 20180112

REACTIONS (9)
  - Dysphagia [Unknown]
  - Condition aggravated [Unknown]
  - Malaise [Unknown]
  - Rhabdomyolysis [Recovered/Resolved]
  - Decreased appetite [Unknown]
  - Fall [Unknown]
  - Haematuria [Unknown]
  - White blood cell count increased [Unknown]
  - Pyrexia [Unknown]

NARRATIVE: CASE EVENT DATE: 20180209
